FAERS Safety Report 6275297-6 (Version None)
Quarter: 2009Q3

REPORT INFORMATION
  Report Type: 
  Country: None (occurrence: None)
  Receive Date: 20090721
  Receipt Date: 20090713
  Transmission Date: 20100115
  Serious: Yes (Congenital Anomaly)
  Sender: FDA-Public Use
  Company Number: A0797566B

PATIENT

DRUGS (4)
  1. LAMICTAL [Suspect]
     Dosage: 500MG PER DAY
     Dates: end: 20090106
  2. ATIVAN [Suspect]
     Dosage: .5MG AS REQUIRED
  3. EFFEXOR [Concomitant]
     Indication: DEPRESSION
     Dosage: 300MG PER DAY
  4. SYNTHROID [Concomitant]
     Indication: HYPOTHYROIDISM
     Dosage: .1MG PER DAY

REACTIONS (6)
  - ABORTION SPONTANEOUS [None]
  - CYSTIC LYMPHANGIOMA [None]
  - DRUG EXPOSURE DURING PREGNANCY [None]
  - PLEURAL EFFUSION [None]
  - PREGNANCY [None]
  - TURNER'S SYNDROME [None]
